FAERS Safety Report 4342733-1 (Version None)
Quarter: 2004Q2

REPORT INFORMATION
  Report Type: 
  Country: None (occurrence: None)
  Receive Date: 20040416
  Receipt Date: 20040407
  Transmission Date: 20050107
  Serious: Yes (Hospitalization)
  Sender: FDA-Public Use
  Company Number: 200314758BCC

PATIENT
  Age: 51 Year
  Sex: Female
  Weight: 74.8435 kg

DRUGS (6)
  1. ALEVE [Suspect]
     Indication: MUSCULOSKELETAL STIFFNESS
     Dosage: 220 MG, ONCE, ORAL
     Route: 048
     Dates: start: 20031218
  2. PROZAC [Concomitant]
  3. KLONOPIN [Concomitant]
  4. XANAX [Concomitant]
  5. ATENOLOL [Concomitant]
  6. CHLOROTHIAZIDE [Concomitant]

REACTIONS (8)
  - BURNING SENSATION [None]
  - DYSPNOEA [None]
  - HEART RATE INCREASED [None]
  - HYPERSENSITIVITY [None]
  - PHARMACEUTICAL PRODUCT COMPLAINT [None]
  - PRURITUS [None]
  - RASH [None]
  - SWELLING FACE [None]
